FAERS Safety Report 6764654-7 (Version None)
Quarter: 2010Q2

REPORT INFORMATION
  Report Type: 
  Country: None (occurrence: None)
  Receive Date: 20100609
  Receipt Date: 20100503
  Transmission Date: 20101027
  Serious: No
  Sender: FDA-Public Use
  Company Number: 2010010695

PATIENT
  Age: 8 Year
  Sex: Female
  Weight: 30.8446 kg

DRUGS (1)
  1. CHILDREN'S ZYRTEC ALLERGY [Suspect]
     Indication: SEASONAL ALLERGY
     Dosage: 1 TEASPOONFUL EVERY 24
     Dates: start: 20090301, end: 20100428

REACTIONS (4)
  - ANGINA PECTORIS [None]
  - FEELING ABNORMAL [None]
  - PALPITATIONS [None]
  - PRODUCT QUALITY ISSUE [None]
